FAERS Safety Report 16952724 (Version 1)
Quarter: 2019Q4

REPORT INFORMATION
  Report Type: Report from Study
  Country: CA (occurrence: CA)
  Receive Date: 20191023
  Receipt Date: 20191023
  Transmission Date: 20200122
  Serious: Yes (Death, Other)
  Sender: FDA-Public Use
  Company Number: CA-WHANIN PHARM. CO., LTD.-2019M1059531

PATIENT
  Age: 30 Year
  Sex: Female

DRUGS (2)
  1. RISPERIDONE. [Suspect]
     Active Substance: RISPERIDONE
     Indication: SCHIZOPHRENIA
     Dosage: 100 MILLIGRAM
  2. CLOZAPINE. [Suspect]
     Active Substance: CLOZAPINE
     Indication: SCHIZOPHRENIA
     Dosage: 100 MILLIGRAM
     Route: 048
     Dates: start: 200911

REACTIONS (1)
  - Death [Fatal]

NARRATIVE: CASE EVENT DATE: 20190430
